FAERS Safety Report 5862291-X (Version None)
Quarter: 2008Q3

REPORT INFORMATION
  Report Type: 
  Country: None (occurrence: None)
  Receive Date: 20080828
  Receipt Date: 20080819
  Transmission Date: 20090109
  Serious: Yes (Hospitalization)
  Sender: FDA-Public Use
  Company Number: GB-SANOFI-SYNTHELABO-F01200801347

PATIENT
  Sex: Female
  Weight: 59 kg

DRUGS (7)
  1. OMEPRAZOLE [Concomitant]
     Dosage: 20 MG
     Route: 048
  2. METOCLOPRAMIDE [Concomitant]
     Dosage: 30 MG
     Route: 048
     Dates: start: 20080401
  3. OXYCODONE HCL [Concomitant]
     Dosage: 40 MG
     Route: 048
     Dates: start: 20080401
  4. SIMVASTATIN [Concomitant]
     Dosage: 40 MG
     Route: 048
  5. ATENOLOL [Concomitant]
     Dosage: 50 MG
     Route: 048
  6. CAPECITABINE [Suspect]
     Dosage: 1000 MG/M2 BID DAYS 1-14
     Route: 048
     Dates: start: 20080605
  7. OXALIPLATIN [Suspect]
     Indication: COLORECTAL CANCER METASTATIC
     Route: 041
     Dates: start: 20080605, end: 20080605

REACTIONS (5)
  - ASTHENIA [None]
  - BRONCHOPULMONARY ASPERGILLOSIS [None]
  - LETHARGY [None]
  - NEUTROPENIA [None]
  - THROMBOCYTOPENIA [None]
